FAERS Safety Report 18726520 (Version 1)
Quarter: 2021Q1

REPORT INFORMATION
  Report Type: Spontaneous
  Country: US (occurrence: US)
  Receive Date: 20210111
  Receipt Date: 20210111
  Transmission Date: 20210419
  Serious: No
  Sender: FDA-Public Use
  Company Number: US-COLLEGIUM PHARMACEUTICAL, INC.-2020CGM00228

PATIENT
  Sex: Female
  Weight: 69.84 kg

DRUGS (17)
  1. LEVOTHYROXINE. [Concomitant]
     Active Substance: LEVOTHYROXINE
  2. RELAFEN [Concomitant]
     Active Substance: NABUMETONE
  3. NUCYNTA [Suspect]
     Active Substance: TAPENTADOL HYDROCHLORIDE
     Indication: SPINAL OSTEOARTHRITIS
     Dosage: 1 TABLETS, 3X/DAY (EVERY 8 HOURS) AS NEEDED FOR PAIN
     Route: 048
     Dates: start: 2010
  4. VITAMIN B12 [Concomitant]
     Active Substance: CYANOCOBALAMIN
  5. POTASSIUM [Concomitant]
     Active Substance: POTASSIUM
  6. TOPIRAMATE. [Concomitant]
     Active Substance: TOPIRAMATE
  7. VITAMIN D [Concomitant]
     Active Substance: VITAMIN D NOS
  8. NUCYNTA ER [Suspect]
     Active Substance: TAPENTADOL HYDROCHLORIDE
     Indication: SPINAL OSTEOARTHRITIS
     Dosage: UNK
     Dates: start: 2010, end: 201907
  9. ZYRTEC [Concomitant]
     Active Substance: CETIRIZINE HYDROCHLORIDE
  10. FOLIC ACID. [Concomitant]
     Active Substance: FOLIC ACID
  11. NUCYNTA ER [Suspect]
     Active Substance: TAPENTADOL HYDROCHLORIDE
     Indication: PAIN
  12. BELBUCA [Concomitant]
     Active Substance: BUPRENORPHINE HYDROCHLORIDE
  13. DICLOFENAC [Concomitant]
     Active Substance: DICLOFENAC
  14. TIZANIDINE. [Concomitant]
     Active Substance: TIZANIDINE
  15. NUCYNTA [Suspect]
     Active Substance: TAPENTADOL HYDROCHLORIDE
     Indication: PAIN
     Dosage: 1 TABLETS, 3X/DAY (EVERY 8 HOURS) AS NEEDED FOR PAIN
     Route: 048
     Dates: start: 2010
  16. BUPRENORPHIN [Suspect]
     Active Substance: BUPRENORPHINE
     Dosage: UNK
     Route: 060
  17. METFORMIN [Concomitant]
     Active Substance: METFORMIN HYDROCHLORIDE

REACTIONS (3)
  - Withdrawal syndrome [Not Recovered/Not Resolved]
  - Tremor [Not Recovered/Not Resolved]
  - Product dose omission issue [Not Recovered/Not Resolved]

NARRATIVE: CASE EVENT DATE: 2018
